FAERS Safety Report 9667977 (Version 4)
Quarter: 2014Q3

REPORT INFORMATION
  Report Type: Spontaneous
  Country: US (occurrence: US)
  Receive Date: 20131104
  Receipt Date: 20140922
  Transmission Date: 20150326
  Serious: Yes (Hospitalization)
  Sender: FDA-Public Use
  Company Number: US-GLAXOSMITHKLINE-A1048058A

PATIENT
  Age: 67 Year
  Sex: Male

DRUGS (4)
  1. COREG CR [Suspect]
     Active Substance: CARVEDILOL PHOSPHATE
     Indication: CARDIAC FAILURE
     Dosage: 20MG THREE TIMES PER DAY
     Route: 048
     Dates: start: 20030501
  2. COREG [Suspect]
     Active Substance: CARVEDILOL
     Indication: CARDIAC FAILURE
     Dosage: 50MG TWICE PER DAY
     Route: 065
     Dates: start: 20030501
  3. UNKNOWN MEDICATION [Concomitant]
     Active Substance: UNSPECIFIED INGREDIENT
  4. FORTEO [Concomitant]
     Active Substance: TERIPARATIDE

REACTIONS (6)
  - Blood pressure abnormal [Unknown]
  - Leukaemia [Unknown]
  - Fatigue [Unknown]
  - Malaise [Unknown]
  - Appendicectomy [Recovered/Resolved]
  - Cardiac failure congestive [Unknown]

NARRATIVE: CASE EVENT DATE: 2013
